FAERS Safety Report 7513909-7 (Version None)
Quarter: 2011Q2

REPORT INFORMATION
  Report Type: 
  Country: None (occurrence: None)
  Receive Date: 20110531
  Receipt Date: 20110524
  Transmission Date: 20111010
  Serious: Yes (Hospitalization)
  Sender: FDA-Public Use
  Company Number: PHHY2011KR45523

PATIENT
  Age: 29 Year
  Sex: Female

DRUGS (6)
  1. METHIMAZOLE [Concomitant]
  2. FUROSEMIDE [Concomitant]
  3. AMIODARONE HCL [Concomitant]
  4. WARFARIN SODIUM [Suspect]
     Indication: PULMONARY EMBOLISM
     Dosage: 5 MG, DAILY
  5. DIGOXIN [Concomitant]
  6. WARFARIN SODIUM [Suspect]
     Dosage: 2 MG, DAILY

REACTIONS (4)
  - DYSPNOEA [None]
  - INFLAMMATION [None]
  - PLEURAL EFFUSION [None]
  - RALES [None]
